FAERS Safety Report 15645109 (Version 2)
Quarter: 2018Q4

REPORT INFORMATION
  Report Type: Spontaneous
  Country: US (occurrence: US)
  Receive Date: 20181121
  Receipt Date: 20181128
  Transmission Date: 20190205
  Serious: No
  Sender: FDA-Public Use
  Company Number: US-PFIZER INC-2018472299

PATIENT
  Age: 59 Year
  Sex: Female
  Weight: 81.63 kg

DRUGS (3)
  1. XELJANZ XR [Suspect]
     Active Substance: TOFACITINIB CITRATE
     Indication: RHEUMATOID ARTHRITIS
     Dosage: UNK
  2. CANNABIDIOL [Interacting]
     Active Substance: CANNABIDIOL
     Indication: SUPPLEMENTATION THERAPY
     Dosage: 0.25 ML, 1X/DAY (1 OUNCE)
     Route: 048
     Dates: start: 2018
  3. XELJANZ XR [Interacting]
     Active Substance: TOFACITINIB CITRATE
     Dosage: 11 MG, 1X/DAY
     Route: 048

REACTIONS (4)
  - Sensitivity to weather change [Unknown]
  - Insomnia [Unknown]
  - Arthritis [Unknown]
  - Drug interaction [Unknown]

NARRATIVE: CASE EVENT DATE: 20181113
